FAERS Safety Report 10238427 (Version 8)
Quarter: 2016Q2

REPORT INFORMATION
  Report Type: Report from Study
  Country: US (occurrence: US)
  Receive Date: 20140616
  Receipt Date: 20160627
  Transmission Date: 20160815
  Serious: Yes (Hospitalization, Other)
  Sender: FDA-Public Use
  Company Number: US-SA-2014SA076708

PATIENT
  Age: 51 Year
  Sex: Male

DRUGS (4)
  1. BENADRYL [Concomitant]
     Active Substance: DIPHENHYDRAMINE HYDROCHLORIDE
     Indication: PREMEDICATION
     Route: 042
  2. NAPROXEN. [Concomitant]
     Active Substance: NAPROXEN
     Indication: PREMEDICATION
  3. FABRAZYME [Suspect]
     Active Substance: AGALSIDASE BETA
     Indication: FABRY^S DISEASE
     Route: 042
     Dates: start: 20090401
  4. PREDNISONE. [Concomitant]
     Active Substance: PREDNISONE
     Indication: PREMEDICATION
     Dosage: 2 TABS NIGHT BEFORE FABRAZYME AND 1 TAB PRIOR TO FABRAZYME

REACTIONS (15)
  - Atrial fibrillation [Unknown]
  - Headache [Recovered/Resolved]
  - Peripheral swelling [Recovering/Resolving]
  - Gastric disorder [Recovered/Resolved]
  - Blood pressure abnormal [Recovering/Resolving]
  - Pain [Not Recovered/Not Resolved]
  - Cerebrovascular accident [Unknown]
  - Pain in extremity [Not Recovered/Not Resolved]
  - Weight fluctuation [Not Recovered/Not Resolved]
  - Renal disorder [Recovering/Resolving]
  - Memory impairment [Unknown]
  - Cardiac disorder [Recovering/Resolving]
  - Infusion related reaction [Recovering/Resolving]
  - Feeling abnormal [Not Recovered/Not Resolved]
  - Fatigue [Recovered/Resolved]

NARRATIVE: CASE EVENT DATE: 201402
